FAERS Safety Report 22041250 (Version 1)
Quarter: 2023Q1

REPORT INFORMATION
  Report Type: Spontaneous
  Country: US (occurrence: US)
  Receive Date: 20230227
  Receipt Date: 20230227
  Transmission Date: 20230418
  Serious: No
  Sender: FDA-Public Use
  Company Number: US-ELI_LILLY_AND_COMPANY-US202302012531

PATIENT
  Sex: Male

DRUGS (1)
  1. MOUNJARO [Suspect]
     Active Substance: TIRZEPATIDE
     Indication: Product used for unknown indication
     Dosage: 2.5 MG, UNKNOWN
     Route: 065

REACTIONS (6)
  - Feeling cold [Unknown]
  - Back pain [Recovered/Resolved]
  - Cardiac discomfort [Unknown]
  - Renal disorder [Unknown]
  - Chest discomfort [Unknown]
  - Abdominal pain upper [Unknown]
